FAERS Safety Report 8385098-0 (Version None)
Quarter: 2012Q2

REPORT INFORMATION
  Report Type: 
  Country: None (occurrence: None)
  Receive Date: 20120524
  Receipt Date: 20120516
  Transmission Date: 20120825
  Serious: Yes (Disabling)
  Sender: FDA-Public Use
  Company Number: FR-BAXTER-2012BAX005765

PATIENT
  Sex: Female

DRUGS (8)
  1. DOXORUBICIN HCL [Suspect]
     Route: 042
     Dates: start: 20100520, end: 20100812
  2. VINCRISTINE [Suspect]
     Route: 042
     Dates: start: 20100902, end: 20101014
  3. PREDNISONE TAB [Concomitant]
     Route: 065
     Dates: start: 20100520, end: 20100812
  4. CYCLOPHOSPHAMIDE [Suspect]
     Route: 042
     Dates: start: 20100520, end: 20100812
  5. CYCLOPHOSPHAMIDE [Suspect]
     Route: 042
     Dates: start: 20100902, end: 20101014
  6. DOXORUBICIN HCL [Suspect]
     Route: 042
     Dates: start: 20100902, end: 20101014
  7. PREDNISONE TAB [Concomitant]
     Route: 065
     Dates: start: 20100902, end: 20101014
  8. VINCRISTINE [Suspect]
     Route: 042
     Dates: start: 20100520, end: 20100812

REACTIONS (1)
  - PARAESTHESIA [None]
